FAERS Safety Report 10775097 (Version 1)
Quarter: 2015Q1

REPORT INFORMATION
  Report Type: Spontaneous
  Country: US (occurrence: US)
  Receive Date: 20150209
  Receipt Date: 20150209
  Transmission Date: 20150721
  Serious: Yes (Hospitalization, Other)
  Sender: FDA-Public Use
  Company Number: US-CELGENEUS-USA-2015014317

PATIENT
  Sex: Female
  Weight: 58.57 kg

DRUGS (1)
  1. REVLIMID [Suspect]
     Active Substance: LENALIDOMIDE
     Indication: LYMPHOMA
     Route: 048
     Dates: start: 20131126

REACTIONS (3)
  - Platelet count decreased [Recovered/Resolved]
  - Urinary tract infection [Recovered/Resolved]
  - Red blood cell count decreased [Recovered/Resolved]
